FAERS Safety Report 5636854-0 (Version None)
Quarter: 2008Q1

REPORT INFORMATION
  Report Type: 
  Country: None (occurrence: None)
  Receive Date: 20080225
  Receipt Date: 20080213
  Transmission Date: 20080703
  Serious: Yes (Life-Threatening, Hospitalization, Other)
  Sender: FDA-Public Use
  Company Number: FR-WYE-H02660608

PATIENT
  Sex: Male

DRUGS (8)
  1. EUPANTOL [Suspect]
     Dosage: UNKNOWN
     Route: 048
     Dates: start: 20071023, end: 20071105
  2. FLECAINIDE ACETATE [Concomitant]
     Indication: ARRHYTHMIA
     Dosage: UNKNOWN
     Route: 048
     Dates: end: 20071105
  3. ELISOR [Concomitant]
     Indication: HYPERLIPIDAEMIA
     Dosage: UNKNOWN
     Route: 048
     Dates: end: 20071105
  4. BENFLUOREX HYDROCHLORIDE [Concomitant]
     Route: 048
     Dates: end: 20071105
  5. LOGIMAX [Concomitant]
     Indication: ESSENTIAL HYPERTENSION
     Dosage: UNKNOWN
     Route: 048
     Dates: end: 20071105
  6. VALSARTAN AND HYDROCHLOROTHIAZIDE [Concomitant]
     Dosage: 160 MG/12.5 MG (FREQUENCY UNKNOWN)
     Route: 048
     Dates: end: 20071105
  7. AVANDAMET [Suspect]
     Dosage: UNKNOWN
     Route: 048
     Dates: start: 20071005, end: 20071105
  8. DIAMICRON [Concomitant]
     Indication: TYPE 2 DIABETES MELLITUS
     Route: 048
     Dates: end: 20071105

REACTIONS (5)
  - CARDIAC FAILURE [None]
  - CONDITION AGGRAVATED [None]
  - HEPATIC FAILURE [None]
  - HEPATIC NECROSIS [None]
  - HEPATITIS [None]
